FAERS Safety Report 5198147-8 (Version None)
Quarter: 2006Q4

REPORT INFORMATION
  Report Type: 
  Country: None (occurrence: None)
  Receive Date: 20061228
  Receipt Date: 20061228
  Transmission Date: 20070319
  Serious: Yes (Hospitalization)
  Sender: FDA-Public Use
  Company Number: None

PATIENT
  Age: 60 Year
  Sex: Female

DRUGS (8)
  1. DAUNORUBICIN HCL [Suspect]
     Indication: MYELOID LEUKAEMIA
     Dosage: 180 MG ONCE IV
     Route: 042
     Dates: start: 20050916, end: 20050917
  2. ASPIRIN [Concomitant]
  3. INSULIN [Concomitant]
  4. ADVAIR DISKUS 100/50 [Concomitant]
  5. IMDUR [Concomitant]
  6. LASIX [Concomitant]
  7. LISINOPRIL [Concomitant]
  8. PREVACID [Concomitant]

REACTIONS (2)
  - CARDIAC FAILURE CONGESTIVE [None]
  - CARDIOMYOPATHY [None]
